FAERS Safety Report 7238987-4 (Version None)
Quarter: 2011Q1

REPORT INFORMATION
  Report Type: 
  Country: None (occurrence: None)
  Receive Date: 20110121
  Receipt Date: 20110112
  Transmission Date: 20110831
  Serious: Yes (Other)
  Sender: FDA-Public Use
  Company Number: CH-PFIZER INC-2011015027

PATIENT
  Age: 81 Year
  Sex: Male

DRUGS (3)
  1. CORDARONE [Suspect]
     Dosage: 200 MG, 1X/DAY
     Route: 048
  2. SALBUTAMOL [Concomitant]
     Dosage: UNK
  3. SERETIDE [Concomitant]
     Dosage: UNK

REACTIONS (2)
  - HEPATOCELLULAR INJURY [None]
  - HEPATIC STEATOSIS [None]
